FAERS Safety Report 11890907 (Version 1)
Quarter: 2016Q1

REPORT INFORMATION
  Report Type: Spontaneous
  Country: US (occurrence: US)
  Receive Date: 20160106
  Receipt Date: 20160106
  Transmission Date: 20160526
  Serious: No
  Sender: FDA-Public Use
  Company Number: US-009507513-1601USA001048

PATIENT
  Sex: Female
  Weight: 90.7 kg

DRUGS (1)
  1. MEVACOR [Suspect]
     Active Substance: LOVASTATIN
     Dosage: UNK
     Route: 048

REACTIONS (3)
  - Swelling face [Unknown]
  - Myalgia [Unknown]
  - Rash pruritic [Unknown]
